FAERS Safety Report 9643190 (Version 1)
Quarter: 2013Q4

REPORT INFORMATION
  Report Type: Spontaneous
  Country: US (occurrence: US)
  Receive Date: 20131024
  Receipt Date: 20131024
  Transmission Date: 20140711
  Serious: No
  Sender: FDA-Public Use
  Company Number: US-GLAXOSMITHKLINE-A1008872A

PATIENT
  Sex: 0

DRUGS (1)
  1. DUAC [Suspect]
     Route: 061

REACTIONS (4)
  - Drug intolerance [Unknown]
  - Erythema [Unknown]
  - Skin exfoliation [Unknown]
  - Dry skin [Unknown]
